FAERS Safety Report 6747599-8 (Version None)
Quarter: 2010Q2

REPORT INFORMATION
  Report Type: 
  Country: None (occurrence: None)
  Receive Date: 20100528
  Receipt Date: 20100519
  Transmission Date: 20101027
  Serious: Yes (Other)
  Sender: FDA-Public Use
  Company Number: US-PFIZER INC-2010054923

PATIENT
  Sex: Female

DRUGS (3)
  1. SUTENT [Suspect]
     Indication: ANGIOSARCOMA
     Dosage: 25 MG,
     Route: 048
  2. GEMZAR [Concomitant]
     Indication: SARCOMA
     Route: 042
  3. TAXOTERE [Concomitant]
     Indication: SARCOMA
     Route: 042

REACTIONS (1)
  - SKIN ULCER [None]
